FAERS Safety Report 10058441 (Version 3)
Quarter: 2014Q2

REPORT INFORMATION
  Report Type: Report from Study
  Country: US (occurrence: US)
  Receive Date: 20140404
  Receipt Date: 20140509
  Transmission Date: 20141212
  Serious: Yes (Hospitalization)
  Sender: FDA-Public Use
  Company Number: US-B.I. PHARMACEUTICALS,INC./RIDGEFIELD-2014-BI-13589BI

PATIENT
  Age: 83 Year
  Sex: Female
  Weight: 63.3 kg

DRUGS (12)
  1. DABIGATRAN [Suspect]
     Indication: ATRIAL FIBRILLATION
     Dosage: 300 MG
     Route: 048
     Dates: start: 201207, end: 20120912
  2. ASPIRIN [Suspect]
     Indication: PROPHYLAXIS
     Dosage: 81 MG
     Route: 048
  3. LASIX [Suspect]
     Indication: CARDIAC FAILURE CONGESTIVE
     Dosage: 40 MG
     Route: 048
  4. FISH OIL- OMEGA 3 [Concomitant]
     Indication: PROPHYLAXIS
     Dosage: 2000 MG
     Route: 048
  5. GLUCOSAMINE 1500 COMPLEX [Concomitant]
     Indication: FIBROMYALGIA
     Dosage: 1500 MG
     Route: 048
  6. HYDROMORPHONE HCL [Concomitant]
     Indication: BACK PAIN
     Dosage: 80 MCG
     Route: 042
  7. IMODIUM [Concomitant]
     Indication: CONSTIPATION
     Dosage: 2 MG
     Route: 048
  8. CARITIN [Concomitant]
     Indication: HYPERSENSITIVITY
     Dosage: 10 MG
     Route: 048
  9. GLUMETZA [Concomitant]
     Indication: DIABETES MELLITUS
     Dosage: 2000 MG
     Route: 048
  10. NITROSTAT [Concomitant]
     Indication: CHEST PAIN
     Dosage: 0.3 MG
     Route: 060
  11. PROBIOTIC [Concomitant]
     Indication: PROPHYLAXIS
     Route: 048
  12. CRESTOR [Concomitant]
     Indication: BLOOD CHOLESTEROL
     Dosage: 20 MG
     Route: 048

REACTIONS (8)
  - Upper gastrointestinal haemorrhage [Recovered/Resolved]
  - Fatigue [Not Recovered/Not Resolved]
  - Melaena [Recovered/Resolved]
  - Dysphagia [Not Recovered/Not Resolved]
  - Dyspnoea [Not Recovered/Not Resolved]
  - Chest pain [Not Recovered/Not Resolved]
  - Peripheral swelling [Not Recovered/Not Resolved]
  - Contusion [Not Recovered/Not Resolved]
